FAERS Safety Report 5707692-5 (Version None)
Quarter: 2008Q2

REPORT INFORMATION
  Report Type: 
  Country: None (occurrence: None)
  Receive Date: 20080416
  Receipt Date: 20080404
  Transmission Date: 20081010
  Serious: Yes (Other)
  Sender: FDA-Public Use
  Company Number: GB-PFIZER INC-2008032808

PATIENT
  Age: 43 Year
  Sex: Female
  Weight: 51.7 kg

DRUGS (3)
  1. CHAMPIX [Suspect]
     Indication: SMOKING CESSATION THERAPY
     Route: 048
  2. DEPO-PROVERA [Concomitant]
     Indication: CONTRACEPTION
  3. NICORETTE [Concomitant]
     Route: 045

REACTIONS (1)
  - SPEECH DISORDER [None]
